FAERS Safety Report 8041677-1 (Version None)
Quarter: 2012Q1

REPORT INFORMATION
  Report Type: 
  Country: None (occurrence: None)
  Receive Date: 20120112
  Receipt Date: 20120105
  Transmission Date: 20120608
  Serious: Yes (Death)
  Sender: FDA-Public Use
  Company Number: US-ELI_LILLY_AND_COMPANY-US201112005861

PATIENT
  Sex: Female

DRUGS (4)
  1. BUSPAR [Concomitant]
     Dosage: 10 MG, TID
  2. ZYPREXA [Suspect]
     Dosage: 20 MG, QD
     Route: 048
  3. DESYREL [Concomitant]
     Dosage: 50 MG, EACH EVENING
  4. ZOLOFT [Concomitant]
     Dosage: 100 MG, EACH MORNING

REACTIONS (4)
  - ANXIETY [None]
  - RESTLESSNESS [None]
  - JUDGEMENT IMPAIRED [None]
  - DEATH [None]
